FAERS Safety Report 23816870 (Version 2)
Quarter: 2024Q2

REPORT INFORMATION
  Report Type: Report from Study
  Country: ES (occurrence: ES)
  Receive Date: 20240504
  Receipt Date: 20240626
  Transmission Date: 20240716
  Serious: Yes (Other)
  Sender: FDA-Public Use
  Company Number: ES-002147023-NVSC2024ES086237

PATIENT
  Age: 10 Year
  Sex: Male

DRUGS (3)
  1. VIJOICE [Suspect]
     Active Substance: ALPELISIB
     Indication: PIK3CA related overgrowth spectrum
     Dosage: START AT 50 MG, UNKNOWN
     Route: 048
  2. VIJOICE [Suspect]
     Active Substance: ALPELISIB
     Dosage: 100 MG (AT 18 MONTHS RAISED)
     Route: 048
     Dates: start: 20191113
  3. VIJOICE [Suspect]
     Active Substance: ALPELISIB
     Dosage: AT 36 MONTHS RAISE AT 150MG
     Route: 048

REACTIONS (1)
  - Growth retardation [Recovered/Resolved]

NARRATIVE: CASE EVENT DATE: 20220601
